FAERS Safety Report 4828044-6 (Version None)
Quarter: 2005Q4

REPORT INFORMATION
  Report Type: 
  Country: None (occurrence: None)
  Receive Date: 20051115
  Receipt Date: 20050720
  Transmission Date: 20060501
  Serious: Yes (Other)
  Sender: FDA-Public Use
  Company Number: PHBS2005JP10479

PATIENT
  Age: 79 Year
  Sex: Female

DRUGS (2)
  1. NEORAL [Suspect]
     Indication: APLASTIC ANAEMIA
     Dosage: 100 MG/DAY
     Route: 048
     Dates: start: 20030801, end: 20050131
  2. PREDNISOLONE [Suspect]

REACTIONS (5)
  - DIFFUSE LARGE B-CELL LYMPHOMA [None]
  - LYMPHADENOPATHY [None]
  - PANCYTOPENIA [None]
  - PNEUMONIA [None]
  - PYREXIA [None]
